FAERS Safety Report 6674903-1 (Version None)
Quarter: 2010Q2

REPORT INFORMATION
  Report Type: 
  Country: None (occurrence: None)
  Receive Date: 20100409
  Receipt Date: 20100401
  Transmission Date: 20101027
  Serious: Yes (Death, Other)
  Sender: FDA-Public Use
  Company Number: IT-CELGENEUS-083-20785-10040350

PATIENT

DRUGS (6)
  1. THALIDOMIDE [Suspect]
     Indication: MULTIPLE MYELOMA
     Route: 048
  2. THALIDOMIDE [Suspect]
     Route: 048
  3. THALIDOMIDE [Suspect]
     Route: 048
  4. THALIDOMIDE [Suspect]
     Route: 048
  5. DEXAMETHASONE [Suspect]
     Indication: MULTIPLE MYELOMA
     Route: 065
  6. BORTEZOMIB [Suspect]
     Indication: MULTIPLE MYELOMA
     Route: 065

REACTIONS (25)
  - ANAEMIA [None]
  - BRONCHITIS [None]
  - CARDIAC DISORDER [None]
  - CONSTIPATION [None]
  - DEATH [None]
  - DIZZINESS [None]
  - FATIGUE [None]
  - GASTROINTESTINAL DISORDER [None]
  - HERPES ZOSTER [None]
  - HYPERGLYCAEMIA [None]
  - HYPOTENSION [None]
  - INFECTION [None]
  - INFLUENZA [None]
  - MOOD ALTERED [None]
  - MULTIPLE MYELOMA [None]
  - NERVOUS SYSTEM DISORDER [None]
  - NEURALGIA [None]
  - NEUROPATHY PERIPHERAL [None]
  - NEUTROPENIA [None]
  - OEDEMA PERIPHERAL [None]
  - PARAESTHESIA [None]
  - PNEUMONIA [None]
  - PYREXIA [None]
  - RASH [None]
  - THROMBOCYTOPENIA [None]
